FAERS Safety Report 5060747-3 (Version None)
Quarter: 2006Q2

REPORT INFORMATION
  Report Type: 
  Country: None (occurrence: None)
  Receive Date: 20060630
  Receipt Date: 20060310
  Transmission Date: 20061013
  Serious: Yes (Hospitalization)
  Sender: FDA-Public Use
  Company Number: US200603003032

PATIENT
  Age: 42 Year
  Sex: Female
  Weight: 76.2 kg

DRUGS (1)
  1. HUMALOG [Suspect]
     Indication: BLOOD GLUCOSE INCREASED
     Dosage: 4.8 U, OTHER

REACTIONS (8)
  - ASTHENIA [None]
  - BLOOD GLUCOSE INCREASED [None]
  - DIABETIC KETOACIDOSIS [None]
  - DRUG INEFFECTIVE [None]
  - FATIGUE [None]
  - FEELING ABNORMAL [None]
  - NAUSEA [None]
  - THIRST [None]
